FAERS Safety Report 23872603 (Version 10)
Quarter: 2025Q4

REPORT INFORMATION
  Report Type: Report from Study
  Country: CA (occurrence: CA)
  Receive Date: 20240520
  Receipt Date: 20251217
  Transmission Date: 20260118
  Serious: Yes (Hospitalization, Other)
  Sender: GLAXOSMITHKLINE
  Company Number: CA-GLAXOSMITHKLINE-CA2024051953

PATIENT
  Age: 51 Year
  Sex: Female

DRUGS (24)
  1. MEPOLIZUMAB [Suspect]
     Active Substance: MEPOLIZUMAB
     Indication: Eosinophilic granulomatosis with polyangiitis
     Dosage: 300 MG, Q4W
  2. MEPOLIZUMAB [Suspect]
     Active Substance: MEPOLIZUMAB
     Indication: Eosinophilic granulomatosis with polyangiitis
     Dosage: 300 MG, Q4W
  3. MEPOLIZUMAB [Suspect]
     Active Substance: MEPOLIZUMAB
     Indication: Eosinophilic granulomatosis with polyangiitis
     Dosage: 300 MG, Q4W
  4. MEPOLIZUMAB [Suspect]
     Active Substance: MEPOLIZUMAB
     Indication: Eosinophilic granulomatosis with polyangiitis
     Dosage: 300 MG, Q4W
  5. MEPOLIZUMAB [Suspect]
     Active Substance: MEPOLIZUMAB
     Indication: Eosinophilic granulomatosis with polyangiitis
     Dosage: 300 MG, Q4W
  6. MEPOLIZUMAB [Suspect]
     Active Substance: MEPOLIZUMAB
     Indication: Eosinophilic granulomatosis with polyangiitis
     Dosage: 300 MG, Q4W
  7. MEPOLIZUMAB [Suspect]
     Active Substance: MEPOLIZUMAB
     Indication: Eosinophilic granulomatosis with polyangiitis
     Dosage: 300 MG, Q4W
  8. MEPOLIZUMAB [Suspect]
     Active Substance: MEPOLIZUMAB
     Indication: Eosinophilic granulomatosis with polyangiitis
     Dosage: 300 MG, Q4W
  9. MEPOLIZUMAB [Suspect]
     Active Substance: MEPOLIZUMAB
     Indication: Eosinophilic granulomatosis with polyangiitis
     Dosage: 300 MG, Q4W
  10. PREDNISONE [Concomitant]
     Active Substance: PREDNISONE
     Indication: Product used for unknown indication
     Dosage: 15 MG, 20 MG TO 15 MG
  11. PREDNISONE [Concomitant]
     Active Substance: PREDNISONE
     Dosage: 50 MG, 50 MG X 3 DAYS, 25 MG X 4 DAYS, AND THEN THEN 15 MG
  12. PREDNISONE [Concomitant]
     Active Substance: PREDNISONE
     Dosage: 15 MG, QD (5 MG X 3 TABS DAY)
  13. PREDNISONE [Concomitant]
     Active Substance: PREDNISONE
     Dosage: 10 MG, QD (FOR 3 DAYS)
  14. PREDNISONE [Concomitant]
     Active Substance: PREDNISONE
     Dosage: 5 MG, 2 CO, DIE
  15. PREDNISONE [Concomitant]
     Active Substance: PREDNISONE
     Dosage: 10 MG, QD
  16. PREDNISONE [Concomitant]
     Active Substance: PREDNISONE
     Dosage: UNK UNK, QD, ALTERNATING BETWEEN 5 MG AND 10 MG
  17. PREDNISONE [Concomitant]
     Active Substance: PREDNISONE
     Dosage: UNK, QD 5-10 MG
  18. PREDNISONE [Concomitant]
     Active Substance: PREDNISONE
     Dosage: UNK
  19. PREDNISONE [Concomitant]
     Active Substance: PREDNISONE
     Dosage: 25 MG
  20. PREDNISONE [Concomitant]
     Active Substance: PREDNISONE
     Dosage: 10 MG, DIE,  PO
  21. PREDNISONE [Concomitant]
     Active Substance: PREDNISONE
     Dosage: 7.5 MG, QD, 7.5MG PO DIE INSTEAD OF 20MG
  22. PLAVIX [Concomitant]
     Active Substance: CLOPIDOGREL BISULFATE
     Indication: Product used for unknown indication
     Dosage: 75 MG, QD
  23. CORTISONE [Concomitant]
     Active Substance: CORTISONE
     Indication: Product used for unknown indication
     Dosage: 10 MG, QD
  24. CORTISONE [Concomitant]
     Active Substance: CORTISONE
     Dosage: 5 MG, QD

REACTIONS (24)
  - Hospitalisation [Not Recovered/Not Resolved]
  - Arterial occlusive disease [Unknown]
  - Myocardial infarction [Unknown]
  - Pneumonia [Unknown]
  - Spinal cord haemorrhage [Unknown]
  - Rib fracture [Unknown]
  - Abdominal pain upper [Unknown]
  - Diarrhoea [Unknown]
  - Illness [Unknown]
  - Pain of skin [Unknown]
  - Acne [Unknown]
  - COVID-19 [Not Recovered/Not Resolved]
  - SARS-CoV-2 test positive [Unknown]
  - Influenza [Unknown]
  - Ecchymosis [Not Recovered/Not Resolved]
  - Dyspnoea [Not Recovered/Not Resolved]
  - Cough [Not Recovered/Not Resolved]
  - Haemoptysis [Unknown]
  - Blood urine present [Not Recovered/Not Resolved]
  - Rash pruritic [Unknown]
  - Inflammation [Unknown]
  - Bronchitis [Unknown]
  - Cough [Unknown]
  - Injury [Not Recovered/Not Resolved]

NARRATIVE: CASE EVENT DATE: 20240501
